FAERS Safety Report 5801854-4 (Version None)
Quarter: 2008Q3

REPORT INFORMATION
  Report Type: 
  Country: None (occurrence: None)
  Receive Date: 20080707
  Receipt Date: 20080701
  Transmission Date: 20090109
  Serious: Yes (Death, Other)
  Sender: FDA-Public Use
  Company Number: UA-BRISTOL-MYERS SQUIBB COMPANY-14206585

PATIENT
  Age: 30 Year
  Sex: Female

DRUGS (4)
  1. SPRYCEL [Suspect]
     Indication: CHRONIC MYELOID LEUKAEMIA
     Dosage: INPT:14JANRSTRT29JAN140MG;8FEB70MG9-28FEBINRPT29FEB-13MAR70MG14MAR-21APR100MG22APR-5MAY08INPT6JUN08
     Route: 048
     Dates: start: 20071224
  2. CYTOSAR [Suspect]
  3. METHOTREXATE [Suspect]
  4. DEXAMETHASONE [Suspect]

REACTIONS (8)
  - CONSTIPATION [None]
  - FEBRILE NEUTROPENIA [None]
  - GASTRIC HAEMORRHAGE [None]
  - GINGIVAL BLEEDING [None]
  - HAEMATOTOXICITY [None]
  - HYPOTENSION [None]
  - MALIGNANT NEOPLASM PROGRESSION [None]
  - ORAL CANDIDIASIS [None]
